FAERS Safety Report 16927913 (Version 1)
Quarter: 2019Q4

REPORT INFORMATION
  Report Type: Spontaneous
  Country: US (occurrence: US)
  Receive Date: 20191017
  Receipt Date: 20191017
  Transmission Date: 20200122
  Serious: Yes (Other)
  Sender: FDA-Public Use
  Company Number: US-ROCHE-2430897

PATIENT
  Age: 43 Year
  Sex: Female

DRUGS (2)
  1. AVASTIN [Suspect]
     Active Substance: BEVACIZUMAB
     Indication: OVARIAN CANCER
     Dosage: ONGOING: NO
     Route: 042
  2. OLAPARIB. [Concomitant]
     Active Substance: OLAPARIB

REACTIONS (3)
  - Off label use [Unknown]
  - Metastatic neoplasm [Not Recovered/Not Resolved]
  - Intentional product use issue [Unknown]
